FAERS Safety Report 8155822-0 (Version None)
Quarter: 2012Q1

REPORT INFORMATION
  Report Type: 
  Country: None (occurrence: None)
  Receive Date: 20120222
  Receipt Date: 20120217
  Transmission Date: 20120608
  Serious: Yes (Other)
  Sender: FDA-Public Use
  Company Number: US-AMGEN-USASP2012010955

PATIENT
  Age: 68 Year
  Sex: Female

DRUGS (10)
  1. RESTORIL [Concomitant]
  2. PROLIA [Suspect]
     Dates: start: 20101007
  3. PROLIA [Suspect]
     Dates: start: 20101007
  4. CALCIUM [Concomitant]
     Dosage: 1000 MG, UNK
  5. PREMARIN [Concomitant]
  6. TOPROL-XL [Concomitant]
  7. PROLIA [Suspect]
     Indication: OSTEOPOROSIS POSTMENOPAUSAL
     Dates: start: 20101007
  8. SIMVASTATIN [Concomitant]
  9. VALSARTAN [Concomitant]
  10. VITAMIN D [Concomitant]
     Dosage: 800 IU, UNK

REACTIONS (4)
  - OSTEONECROSIS OF JAW [None]
  - PNEUMONIA [None]
  - BACK PAIN [None]
  - NECK PAIN [None]
